FAERS Safety Report 8102733-2 (Version None)
Quarter: 2012Q1

REPORT INFORMATION
  Report Type: 
  Country: None (occurrence: None)
  Receive Date: 20120201
  Receipt Date: 20120119
  Transmission Date: 20120608
  Serious: Yes (Hospitalization, Other)
  Sender: FDA-Public Use
  Company Number: US-UCBSA-048949

PATIENT
  Age: 39 Year
  Sex: Male

DRUGS (1)
  1. CIMZIA [Suspect]
     Indication: CROHN'S DISEASE
     Route: 058

REACTIONS (7)
  - PULMONARY EMBOLISM [None]
  - DYSPNOEA [None]
  - CROHN'S DISEASE [None]
  - ATELECTASIS [None]
  - THROMBOSIS [None]
  - MESENTERIC VEIN THROMBOSIS [None]
  - PORTAL VEIN THROMBOSIS [None]
